FAERS Safety Report 12318078 (Version 1)
Quarter: 2016Q2

REPORT INFORMATION
  Report Type: Spontaneous
  Country: US (occurrence: US)
  Receive Date: 20160429
  Receipt Date: 20160429
  Transmission Date: 20160815
  Serious: No
  Sender: FDA-Public Use
  Company Number: GXBR2015US000897

PATIENT
  Age: 81 Year
  Sex: Male

DRUGS (2)
  1. ETODOLAC TABLETS [Suspect]
     Active Substance: ETODOLAC
     Indication: MUSCLE STRAIN
     Dosage: UNK DF, UNK
     Route: 065
  2. XTANDI [Suspect]
     Active Substance: ENZALUTAMIDE
     Indication: PROSTATE CANCER
     Dosage: 40 MG, QD4SDO
     Route: 048
     Dates: start: 20141118

REACTIONS (3)
  - Rash [Recovered/Resolved]
  - Nasal disorder [Unknown]
  - Tinnitus [Unknown]

NARRATIVE: CASE EVENT DATE: 20141119
